FAERS Safety Report 19904088 (Version 3)
Quarter: 2021Q4

REPORT INFORMATION
  Report Type: Spontaneous
  Country: CN (occurrence: CN)
  Receive Date: 20210930
  Receipt Date: 20211011
  Transmission Date: 20220303
  Serious: Yes (Other)
  Sender: FDA-Public Use
  Company Number: CN-PFIZER INC-202101285084

PATIENT
  Age: 27 Year
  Sex: Female
  Weight: 51 kg

DRUGS (12)
  1. MEROPENEM [Interacting]
     Active Substance: MEROPENEM
     Indication: Pneumonia
     Dosage: 1 G, 3X/DAY (1 G, Q8H)
     Route: 042
  2. VALPROATE SODIUM [Interacting]
     Active Substance: VALPROATE SODIUM
     Indication: Epilepsy
     Dosage: 750 MG
     Route: 042
  3. VALPROATE SODIUM [Interacting]
     Active Substance: VALPROATE SODIUM
     Dosage: 400 MG (5TH DAY, MICRO-PUMPED)
  4. VALPROATE SODIUM [Interacting]
     Active Substance: VALPROATE SODIUM
     Dosage: 0.4 G, Q8H, ON 6TH DAY, TABLETS
     Route: 045
  5. DIAZEPAM [Concomitant]
     Active Substance: DIAZEPAM
     Indication: Epilepsy
     Dosage: 10 MG
  6. PHENOBARBITAL [Concomitant]
     Active Substance: PHENOBARBITAL
     Indication: Epilepsy
     Dosage: 0.2 G
     Route: 030
  7. PHENOBARBITAL [Concomitant]
     Active Substance: PHENOBARBITAL
     Dosage: 0.1 G
     Route: 030
  8. LAMOTRIGINE [Concomitant]
     Active Substance: LAMOTRIGINE
     Indication: Epilepsy
     Dosage: 0.5 G, 2X/DAY (0.5 G, Q12H)
  9. CLONAZEPAM [Concomitant]
     Active Substance: CLONAZEPAM
     Indication: Epilepsy
     Dosage: 2 MG, 2X/DAY(2 MG, Q12H)
  10. LEVETIRACETAM [Concomitant]
     Active Substance: LEVETIRACETAM
     Indication: Epilepsy
     Dosage: 0.5 G, 2X/DAY (0.5 G, Q12H, 2ND DAY)
  11. LEVETIRACETAM [Concomitant]
     Active Substance: LEVETIRACETAM
     Dosage: 0.75 G, 2X/DAY (0.75 G, Q12H, 6TH DAY)
  12. CEFTRIAXONE [Concomitant]
     Active Substance: CEFTRIAXONE
     Indication: Pneumonia
     Dosage: UNK

REACTIONS (3)
  - Drug interaction [Recovering/Resolving]
  - Anticonvulsant drug level decreased [Recovering/Resolving]
  - Epilepsy [Recovered/Resolved]
